FAERS Safety Report 18227218 (Version 1)
Quarter: 2020Q3

REPORT INFORMATION
  Report Type: Spontaneous
  Country: US (occurrence: US)
  Receive Date: 20200903
  Receipt Date: 20200903
  Transmission Date: 20201103
  Serious: Yes (Hospitalization)
  Sender: FDA-Public Use
  Company Number: None

PATIENT
  Age: 72 Year
  Sex: Male
  Weight: 71.7 kg

DRUGS (1)
  1. CISPLATIN. [Suspect]
     Active Substance: CISPLATIN
     Dates: end: 20200826

REACTIONS (3)
  - White blood cell count decreased [None]
  - Therapy interrupted [None]
  - Neutrophil count decreased [None]

NARRATIVE: CASE EVENT DATE: 20200902
